FAERS Safety Report 9485792 (Version 1)
Quarter: 2013Q3

REPORT INFORMATION
  Report Type: Spontaneous
  Country: CH (occurrence: CH)
  Receive Date: 20130829
  Receipt Date: 20130829
  Transmission Date: 20140515
  Serious: Yes (Hospitalization)
  Sender: FDA-Public Use
  Company Number: JP-ASTRAZENECA-2013SE65751

PATIENT
  Age: 65 Year
  Sex: Female

DRUGS (6)
  1. BLOPRESS PLUS [Suspect]
     Indication: SECONDARY HYPERTENSION
     Dosage: 32MG CANDESARTAN CILEXETIL 25MG HYDROCHLOROTHIAZIDE, EVERY DAY
     Route: 048
     Dates: end: 20130728
  2. SORTIS [Concomitant]
     Indication: PRODUCT USED FOR UNKNOWN INDICATION
     Route: 048
  3. ELTROXIN [Concomitant]
     Indication: PRODUCT USED FOR UNKNOWN INDICATION
     Route: 065
  4. PANTOZOL [Concomitant]
     Indication: PRODUCT USED FOR UNKNOWN INDICATION
     Route: 065
  5. NIFEDIPIN [Concomitant]
     Indication: PRODUCT USED FOR UNKNOWN INDICATION
     Route: 065
  6. TEMESTA [Concomitant]
     Indication: PRODUCT USED FOR UNKNOWN INDICATION
     Route: 065

REACTIONS (2)
  - Convulsion [Recovered/Resolved]
  - Hyponatraemia [Recovered/Resolved]
